FAERS Safety Report 6124694-8 (Version None)
Quarter: 2009Q1

REPORT INFORMATION
  Report Type: 
  Country: None (occurrence: None)
  Receive Date: 20090319
  Receipt Date: 20090312
  Transmission Date: 20090719
  Serious: Yes (Other)
  Sender: FDA-Public Use
  Company Number: AT-ABBOTT-09P-009-0562160-00

PATIENT
  Age: 40 Year
  Sex: Female

DRUGS (2)
  1. REDUCTIL [Suspect]
     Indication: WEIGHT CONTROL
  2. ENBREL [Concomitant]
     Indication: DRUG USE FOR UNKNOWN INDICATION

REACTIONS (1)
  - POLYCHONDRITIS [None]
